FAERS Safety Report 9516524 (Version 1)
Quarter: 2013Q3

REPORT INFORMATION
  Report Type: Spontaneous
  Country: DE (occurrence: DE)
  Receive Date: 20130911
  Receipt Date: 20130911
  Transmission Date: 20140515
  Serious: Yes (Hospitalization, Other)
  Sender: FDA-Public Use
  Company Number: DE-TEVA-430293GER

PATIENT
  Age: 0 Day
  Sex: Female

DRUGS (4)
  1. SERTRALIN [Suspect]
     Route: 064
  2. PAROXAT [Concomitant]
     Route: 064
  3. BETAMETHASON [Concomitant]
     Route: 064
  4. INSULIN [Concomitant]
     Route: 058

REACTIONS (3)
  - Neonatal respiratory distress syndrome [Recovered/Resolved]
  - Premature baby [Recovered/Resolved]
  - Bradycardia neonatal [Recovered/Resolved]
